FAERS Safety Report 5247559-2 (Version None)
Quarter: 2007Q1

REPORT INFORMATION
  Report Type: 
  Country: None (occurrence: None)
  Receive Date: 20070227
  Receipt Date: 20070216
  Transmission Date: 20070707
  Serious: Yes (Hospitalization)
  Sender: FDA-Public Use
  Company Number: PHHO2007JP01991

PATIENT
  Age: 79 Year
  Sex: Female

DRUGS (6)
  1. DIOVAN [Suspect]
     Indication: HYPERTENSION
     Dosage: 40 MG, QD
     Route: 048
     Dates: start: 20031118, end: 20060223
  2. TAMBOCOR [Suspect]
     Indication: ARRHYTHMIA
     Route: 048
     Dates: start: 20001116, end: 20060223
  3. THYRADIN [Concomitant]
     Indication: DIABETES MELLITUS
  4. GASTER [Concomitant]
     Indication: GASTRITIS
  5. MUCOSTA [Concomitant]
     Indication: GASTRITIS
  6. LIPITOR [Concomitant]

REACTIONS (6)
  - CARDIAC FAILURE [None]
  - CARDIAC PACEMAKER REPLACEMENT [None]
  - CARDIOMEGALY [None]
  - CHEST DISCOMFORT [None]
  - DYSPNOEA [None]
  - SICK SINUS SYNDROME [None]
